FAERS Safety Report 4461476-7 (Version None)
Quarter: 2004Q3

REPORT INFORMATION
  Report Type: 
  Country: None (occurrence: None)
  Receive Date: 20040916
  Receipt Date: 20040811
  Transmission Date: 20050211
  Serious: No
  Sender: FDA-Public Use
  Company Number: CART-10365

PATIENT
  Age: 44 Year
  Sex: Male
  Weight: 120.2032 kg

DRUGS (1)
  1. CARTICEL [Suspect]
     Indication: ARTHROPATHY
     Dosage: 1 NA ONCE IS
     Dates: start: 20010425, end: 20010425

REACTIONS (3)
  - FAILURE OF IMPLANT [None]
  - GRAFT COMPLICATION [None]
  - LOCALISED OSTEOARTHRITIS [None]
